FAERS Safety Report 11416009 (Version 1)
Quarter: 2015Q3

REPORT INFORMATION
  Report Type: Spontaneous
  Country: US (occurrence: US)
  Receive Date: 20150825
  Receipt Date: 20150825
  Transmission Date: 20151125
  Serious: No
  Sender: FDA-Public Use
  Company Number: US-TEVA-505430USA

PATIENT
  Age: 63 Year
  Sex: Male
  Weight: 131.52 kg

DRUGS (5)
  1. FEXOFENADINE [Suspect]
     Active Substance: FEXOFENADINE\FEXOFENADINE HYDROCHLORIDE
     Indication: SEASONAL ALLERGY
     Dosage: 180 MILLIGRAM DAILY;
     Route: 048
     Dates: start: 20140821, end: 20140823
  2. IBUPROFEN. [Concomitant]
     Active Substance: IBUPROFEN
  3. DILTIAZEM [Concomitant]
     Active Substance: DILTIAZEM
  4. LISINOPRIL. [Concomitant]
     Active Substance: LISINOPRIL
     Dates: start: 2011
  5. ADVAIR HFA [Concomitant]
     Active Substance: FLUTICASONE PROPIONATE\SALMETEROL XINAFOATE

REACTIONS (1)
  - Drug ineffective [Unknown]

NARRATIVE: CASE EVENT DATE: 20140821
